FAERS Safety Report 4875931-9 (Version None)
Quarter: 2006Q1

REPORT INFORMATION
  Report Type: 
  Country: None (occurrence: None)
  Receive Date: 20060106
  Receipt Date: 20051222
  Transmission Date: 20060701
  Serious: Yes (Hospitalization)
  Sender: FDA-Public Use
  Company Number: 28310

PATIENT
  Age: 74 Year
  Sex: Female

DRUGS (3)
  1. FLECAINIDE ACETATE [Suspect]
     Indication: ATRIAL FIBRILLATION
     Dosage: 200 MG (100 MG, 2 IN 1 D(S), ORAL
     Route: 048
     Dates: start: 20030601
  2. DULOXETINE HYDROCHLORIDE [Suspect]
  3. WARFARIN [Suspect]

REACTIONS (6)
  - ATRIAL FLUTTER [None]
  - DYSPNOEA [None]
  - FATIGUE [None]
  - HEPATIC FUNCTION ABNORMAL [None]
  - HYPOKALAEMIA [None]
  - THERAPEUTIC RESPONSE DECREASED [None]
